FAERS Safety Report 4653965-7 (Version None)
Quarter: 2005Q2

REPORT INFORMATION
  Report Type: 
  Country: None (occurrence: None)
  Receive Date: 20050404
  Receipt Date: 20041201
  Transmission Date: 20051028
  Serious: No
  Sender: FDA-Public Use
  Company Number: USA041285029

PATIENT
  Age: 70 Year
  Sex: Male
  Weight: 136 kg

DRUGS (9)
  1. CYMBALTA [Suspect]
     Indication: ANXIETY
     Dosage: 30 MG DAY
     Dates: start: 20041119, end: 20041130
  2. CYMBALTA [Suspect]
     Indication: DEPRESSION
     Dosage: 30 MG DAY
     Dates: start: 20041119, end: 20041130
  3. PROZAC [Suspect]
     Indication: DEPRESSION
     Dates: end: 20020101
  4. WATER PILLS [Concomitant]
  5. AVAPRO [Concomitant]
  6. CARDURA [Concomitant]
  7. GLUCOPHAGE [Concomitant]
  8. INSULIN [Concomitant]
  9. ASPIRIN [Concomitant]

REACTIONS (7)
  - ABNORMAL BEHAVIOUR [None]
  - ANXIETY [None]
  - BLOOD GLUCOSE DECREASED [None]
  - EMOTIONAL DISTRESS [None]
  - SOMNOLENCE [None]
  - STUPOR [None]
  - TREMOR [None]
